FAERS Safety Report 19079310 (Version 1)
Quarter: 2021Q1

REPORT INFORMATION
  Report Type: Spontaneous
  Country: DE (occurrence: DE)
  Receive Date: 20210331
  Receipt Date: 20210331
  Transmission Date: 20210420
  Serious: Yes (Other)
  Sender: FDA-Public Use
  Company Number: NVSC2020DE315340

PATIENT
  Age: 18 Year
  Sex: Male
  Weight: 51 kg

DRUGS (13)
  1. PULMOZYME [Concomitant]
     Active Substance: DORNASE ALFA
     Indication: CYSTIC FIBROSIS
     Dosage: 2500 IU, QD
     Route: 055
     Dates: start: 20190731
  2. FORMOTEROL [Concomitant]
     Active Substance: FORMOTEROL
     Indication: CYSTIC FIBROSIS
     Dosage: 24 UG, QD (24 MCG, QD)
     Route: 055
     Dates: start: 20190731
  3. ACC 200 [Concomitant]
     Active Substance: ACETYLCYSTEINE
     Indication: CYSTIC FIBROSIS
     Dosage: 200 MG, QD
     Route: 048
     Dates: start: 20190731
  4. OMEPRAZOLE. [Concomitant]
     Active Substance: OMEPRAZOLE
     Indication: CYSTIC FIBROSIS
     Dosage: 20 MG
     Route: 048
     Dates: start: 20190226
  5. SALBUTAMOL [Concomitant]
     Active Substance: ALBUTEROL
     Indication: CYSTIC FIBROSIS
     Dosage: 10 DRP, QD (EVERY DAYS 2 SEPARATED DOSES)
     Route: 055
     Dates: start: 20190301
  6. ATROVENT [Concomitant]
     Active Substance: IPRATROPIUM BROMIDE
     Indication: CYSTIC FIBROSIS
     Dosage: 30 DF, QD (30 DOSAGE FORM, QD)
     Route: 055
     Dates: start: 20181011
  7. TOBRAMYCIN. [Suspect]
     Active Substance: TOBRAMYCIN
     Indication: PSEUDOMONAS TEST POSITIVE
     Dosage: 600 MG, QD (EVERY DAYS 2 SEPARATED DOSES)
     Route: 055
     Dates: start: 20200408, end: 20200506
  8. KALYDECO [Suspect]
     Active Substance: IVACAFTOR
     Indication: CYSTIC FIBROSIS
     Dosage: 150 MG, QD (IVACAFTOR)
     Route: 048
     Dates: start: 20200408
  9. MOVICOL [Concomitant]
     Active Substance: POLYETHYLENE GLYCOL 3350\POTASSIUM CHLORIDE\SODIUM BICARBONATE\SODIUM CHLORIDE
     Indication: CYSTIC FIBROSIS
     Dosage: 1 DF, QD
     Route: 048
     Dates: start: 20190731
  10. KREON [Concomitant]
     Active Substance: PANCRELIPASE
     Indication: CYSTIC FIBROSIS
     Dosage: UNK
     Route: 048
     Dates: start: 20190731
  11. ADEK [Concomitant]
     Indication: CYSTIC FIBROSIS
     Dosage: 1 DF, QD
     Route: 048
     Dates: start: 20181011
  12. PANCRELIPASE. [Concomitant]
     Active Substance: PANCRELIPASE
     Indication: PRODUCT USED FOR UNKNOWN INDICATION
     Dosage: UNK
     Route: 065
  13. NATRIUMKLORID [Concomitant]
     Active Substance: SODIUM CHLORIDE
     Indication: CYSTIC FIBROSIS
     Dosage: 5 ML, QD
     Route: 055
     Dates: start: 20190731

REACTIONS (2)
  - Increased bronchial secretion [Recovered/Resolved]
  - Throat tightness [Recovered/Resolved]

NARRATIVE: CASE EVENT DATE: 20200408
